FAERS Safety Report 18792514 (Version 1)
Quarter: 2021Q1

REPORT INFORMATION
  Report Type: Spontaneous
  Country: US (occurrence: US)
  Receive Date: 20210127
  Receipt Date: 20210127
  Transmission Date: 20210419
  Serious: No
  Sender: FDA-Public Use
  Company Number: US-DRREDDYS-USA/USA/21/0130770

PATIENT
  Age: 43 Year

DRUGS (2)
  1. ZENATANE [Suspect]
     Active Substance: ISOTRETINOIN
     Indication: PRODUCT USED FOR UNKNOWN INDICATION
     Dosage: RMA ISSUE DATE: 8/17/2020 12:00:00 AM, 9/14/2020 12:00:00 AM, 10/16/2020 12:00:00 AM AND 11/10/2020
  2. ZENATANE [Suspect]
     Active Substance: ISOTRETINOIN
     Dosage: RMA ISSUE DATE: 12/7/2020 12:00:00 AM.

REACTIONS (1)
  - Therapy cessation [Unknown]
